FAERS Safety Report 8337237-5 (Version None)
Quarter: 2012Q2

REPORT INFORMATION
  Report Type: 
  Country: None (occurrence: None)
  Receive Date: 20120504
  Receipt Date: 20120426
  Transmission Date: 20120825
  Serious: Yes (Hospitalization)
  Sender: FDA-Public Use
  Company Number: US-MYLANLABS-2012S1008728

PATIENT
  Age: 39 Year
  Sex: Female

DRUGS (2)
  1. DIPHENHYDRAMINE HCL [Suspect]
     Indication: HYPERSENSITIVITY
     Route: 042
     Dates: start: 20120203, end: 20120203
  2. LEVOTHYROXINE SODIUM [Concomitant]
     Indication: HYPOTHYROIDISM
     Route: 048

REACTIONS (13)
  - INCORRECT DOSE ADMINISTERED [None]
  - SKIN DISCOLOURATION [None]
  - ACCIDENTAL OVERDOSE [None]
  - SINUS TACHYCARDIA [None]
  - RASH [None]
  - GAIT DISTURBANCE [None]
  - WEIGHT DECREASED [None]
  - INCORRECT DRUG ADMINISTRATION RATE [None]
  - FLUSHING [None]
  - MUSCLE TWITCHING [None]
  - INSOMNIA [None]
  - DRY THROAT [None]
  - CHEST DISCOMFORT [None]
